FAERS Safety Report 16076075 (Version 1)
Quarter: 2019Q1

REPORT INFORMATION
  Report Type: Report from Study
  Country: None (occurrence: CA)
  Receive Date: 20190315
  Receipt Date: 20190315
  Transmission Date: 20190418
  Serious: Yes (Other)
  Sender: FDA-Public Use
  Company Number: CA-ABBVIE-19K-028-2704055-00

PATIENT
  Age: 79 Year
  Sex: Female

DRUGS (1)
  1. HUMIRA [Suspect]
     Active Substance: ADALIMUMAB
     Indication: CROHN^S DISEASE
     Route: 058
     Dates: start: 20140311

REACTIONS (4)
  - Myalgia [Unknown]
  - Osteoporosis [Unknown]
  - Osteoporotic fracture [Recovered/Resolved]
  - Faeces soft [Unknown]

NARRATIVE: CASE EVENT DATE: 20190310
